FAERS Safety Report 23343807 (Version 2)
Quarter: 2025Q3

REPORT INFORMATION
  Report Type: Spontaneous
  Country: EU (occurrence: EU)
  Receive Date: 20231227
  Receipt Date: 20250710
  Transmission Date: 20251020
  Serious: Yes (Other)
  Sender: MYLAN
  Company Number: EU-UCBSA-2023056563

PATIENT
  Sex: Female

DRUGS (32)
  1. LEVETIRACETAM [Suspect]
     Active Substance: LEVETIRACETAM
     Indication: Severe myoclonic epilepsy of infancy
  2. LEVETIRACETAM [Suspect]
     Active Substance: LEVETIRACETAM
     Route: 065
  3. LEVETIRACETAM [Suspect]
     Active Substance: LEVETIRACETAM
     Route: 065
  4. LEVETIRACETAM [Suspect]
     Active Substance: LEVETIRACETAM
  5. FENFLURAMINE HYDROCHLORIDE [Suspect]
     Active Substance: FENFLURAMINE HYDROCHLORIDE
     Indication: Severe myoclonic epilepsy of infancy
  6. FENFLURAMINE HYDROCHLORIDE [Suspect]
     Active Substance: FENFLURAMINE HYDROCHLORIDE
     Route: 065
  7. FENFLURAMINE HYDROCHLORIDE [Suspect]
     Active Substance: FENFLURAMINE HYDROCHLORIDE
     Route: 065
  8. FENFLURAMINE HYDROCHLORIDE [Suspect]
     Active Substance: FENFLURAMINE HYDROCHLORIDE
  9. MIDAZOLAM HYDROCHLORIDE [Concomitant]
     Active Substance: MIDAZOLAM HYDROCHLORIDE
     Indication: Petit mal epilepsy
  10. MIDAZOLAM HYDROCHLORIDE [Concomitant]
     Active Substance: MIDAZOLAM HYDROCHLORIDE
     Route: 065
  11. MIDAZOLAM HYDROCHLORIDE [Concomitant]
     Active Substance: MIDAZOLAM HYDROCHLORIDE
     Route: 065
  12. MIDAZOLAM HYDROCHLORIDE [Concomitant]
     Active Substance: MIDAZOLAM HYDROCHLORIDE
  13. VALPROIC ACID [Concomitant]
     Active Substance: VALPROIC ACID
     Indication: Product used for unknown indication
  14. VALPROIC ACID [Concomitant]
     Active Substance: VALPROIC ACID
     Route: 065
  15. VALPROIC ACID [Concomitant]
     Active Substance: VALPROIC ACID
     Route: 065
  16. VALPROIC ACID [Concomitant]
     Active Substance: VALPROIC ACID
  17. Relsed [Concomitant]
     Indication: Product used for unknown indication
  18. Relsed [Concomitant]
     Route: 065
  19. Relsed [Concomitant]
     Route: 065
  20. Relsed [Concomitant]
  21. CLOBAZAM [Concomitant]
     Active Substance: CLOBAZAM
     Indication: Product used for unknown indication
  22. CLOBAZAM [Concomitant]
     Active Substance: CLOBAZAM
     Route: 065
  23. CLOBAZAM [Concomitant]
     Active Substance: CLOBAZAM
     Route: 065
  24. CLOBAZAM [Concomitant]
     Active Substance: CLOBAZAM
  25. THIOPENTAL [Concomitant]
     Active Substance: THIOPENTAL
     Indication: Product used for unknown indication
  26. THIOPENTAL [Concomitant]
     Active Substance: THIOPENTAL
     Route: 065
  27. THIOPENTAL [Concomitant]
     Active Substance: THIOPENTAL
     Route: 065
  28. THIOPENTAL [Concomitant]
     Active Substance: THIOPENTAL
  29. STIRIPENTOL [Concomitant]
     Active Substance: STIRIPENTOL
     Indication: Product used for unknown indication
  30. STIRIPENTOL [Concomitant]
     Active Substance: STIRIPENTOL
     Route: 065
  31. STIRIPENTOL [Concomitant]
     Active Substance: STIRIPENTOL
     Route: 065
  32. STIRIPENTOL [Concomitant]
     Active Substance: STIRIPENTOL

REACTIONS (13)
  - Hemiplegia [Unknown]
  - Petit mal epilepsy [Unknown]
  - Postictal paralysis [Unknown]
  - Seizure [Recovered/Resolved]
  - Generalised tonic-clonic seizure [Unknown]
  - Clonic convulsion [Unknown]
  - Epilepsy [Unknown]
  - Liver injury [Unknown]
  - Oxygen saturation decreased [Unknown]
  - Myoclonus [Unknown]
  - Decreased appetite [Recovered/Resolved]
  - Off label use [Unknown]
  - Drug ineffective [Unknown]
